FAERS Safety Report 7142168-2 (Version None)
Quarter: 2010Q4

REPORT INFORMATION
  Report Type: 
  Country: None (occurrence: None)
  Receive Date: 20101207
  Receipt Date: 20101124
  Transmission Date: 20110411
  Serious: Yes (Other)
  Sender: FDA-Public Use
  Company Number: US-ROCHE-746112

PATIENT
  Age: 80 Year
  Sex: Female

DRUGS (12)
  1. BEVACIZUMAB [Suspect]
     Route: 042
     Dates: start: 20080731
  2. BEVACIZUMAB [Suspect]
     Dosage: LAST DOSE PRIOR TO SAE 15 SEP 2008, CYCLE 3
     Route: 042
     Dates: start: 20080911
  3. TOPOTECAN [Suspect]
     Dosage: FREQUENCY: 5 CONSECUTIVE DAYS ON DAYS 1-5,
     Route: 048
     Dates: start: 20080731
  4. FLUTICASONE PROPIONATE [Concomitant]
  5. SALMETEROL XINAFOATE [Concomitant]
  6. TIOTROPIUM BROMIDE [Concomitant]
  7. EPOETIN ALPHA [Concomitant]
  8. DEXAMETHASONE [Concomitant]
  9. DOLASETRON MESYLATE [Concomitant]
  10. FAMOTIDINE [Concomitant]
  11. SODIUM CHLORIDE [Concomitant]
  12. LORAZEPAM [Concomitant]

REACTIONS (5)
  - ALOPECIA [None]
  - ANAEMIA [None]
  - ANHEDONIA [None]
  - ASTHENIA [None]
  - FATIGUE [None]
